FAERS Safety Report 5740372-9 (Version None)
Quarter: 2008Q2

REPORT INFORMATION
  Report Type: 
  Country: None (occurrence: None)
  Receive Date: 20080516
  Receipt Date: 20080506
  Transmission Date: 20081010
  Serious: Yes (Other)
  Sender: FDA-Public Use
  Company Number: PHEH2008US02694

PATIENT
  Age: 60 Year
  Sex: Female

DRUGS (10)
  1. THALIDOMIDE [Concomitant]
     Dosage: 200 MG, QD
     Dates: start: 20061214, end: 20070611
  2. DEXAMETHASONE [Concomitant]
     Dosage: 40 MG, 4 DAYS ON / 4 DAYS OFF
     Dates: start: 20061214, end: 20070416
  3. ZOMETA [Suspect]
     Indication: MULTIPLE MYELOMA
     Dosage: 4 MG MONTHLY
     Dates: start: 20061101, end: 20061201
  4. ZOMETA [Suspect]
     Dosage: UNK, NO TREATMENT
     Dates: start: 20071001, end: 20071001
  5. ZOMETA [Suspect]
     Dosage: 4 MG MONTHLY
     Dates: start: 20071101, end: 20071220
  6. ZOMETA [Suspect]
     Dosage: UNK, NO TREATMENT
     Dates: start: 20070101, end: 20070101
  7. ZOMETA [Suspect]
     Dosage: 4 MG MONTHLY
     Dates: start: 20070201, end: 20070301
  8. ZOMETA [Suspect]
     Dosage: UNK, NO TREATMENT
     Dates: start: 20070401, end: 20070401
  9. ZOMETA [Suspect]
     Dosage: 4 MG MONTHLY
     Dates: start: 20070501, end: 20070901
  10. PREDNISONE TAB [Concomitant]
     Dosage: 50 MG, QOD
     Dates: start: 20060416, end: 20080129

REACTIONS (30)
  - ALPHA HAEMOLYTIC STREPTOCOCCAL INFECTION [None]
  - BACTERIAL CULTURE POSITIVE [None]
  - BONE DEBRIDEMENT [None]
  - BONE DISORDER [None]
  - BONE EROSION [None]
  - BRAIN ABSCESS [None]
  - BREATH ODOUR [None]
  - CEREBRAL DECOMPRESSION [None]
  - CRANIOTOMY [None]
  - CYST [None]
  - EAR PAIN [None]
  - ERYTHEMA [None]
  - ETHMOID SINUS SURGERY [None]
  - EXOPHTHALMOS [None]
  - GINGIVAL DISORDER [None]
  - GINGIVAL INFECTION [None]
  - ORAL INTAKE REDUCED [None]
  - ORAL PAIN [None]
  - OSTEITIS [None]
  - OSTEOMYELITIS ACUTE [None]
  - OSTEONECROSIS [None]
  - PARALYSIS [None]
  - SINUS ANTROSTOMY [None]
  - SINUS OPERATION [None]
  - SINUSITIS [None]
  - SWELLING [None]
  - SWELLING FACE [None]
  - THERAPEUTIC PROCEDURE [None]
  - TOOTH ABSCESS [None]
  - TOOTH EXTRACTION [None]
